FAERS Safety Report 23169167 (Version 1)
Quarter: 2023Q4

REPORT INFORMATION
  Report Type: Spontaneous
  Country: FR (occurrence: FR)
  Receive Date: 20231110
  Receipt Date: 20231110
  Transmission Date: 20240110
  Serious: Yes (Other)
  Sender: FDA-Public Use
  Company Number: None

PATIENT
  Age: 49 Year
  Sex: Female

DRUGS (2)
  1. CAPECITABINE [Suspect]
     Active Substance: CAPECITABINE
     Indication: Pancreatic neuroendocrine tumour
     Dosage: 250MG/J AU CYCLE 1 PUIS ? LA DOSE DE 340MG/J LES CYCLES SUIVANTS, 5 JOURS CONS?CUTIFS.  ?250MG/D ON
     Route: 048
  2. TEMOZOLOMIDE [Suspect]
     Active Substance: TEMOZOLOMIDE
     Indication: Pancreatic neuroendocrine tumour
     Dosage: 150MG/M2 AU CYCLE 1 ET 200 MG/M2 LES CYCLES SUIVANTS?150 MG/M2 IN CYCLE 1 AND 200 MG/M2 IN SUBSEQUEN
     Route: 048
     Dates: start: 20230405

REACTIONS (3)
  - Toxic skin eruption [Recovered/Resolved]
  - Eating disorder [Recovered/Resolved]
  - Hallucination, visual [Recovered/Resolved]

NARRATIVE: CASE EVENT DATE: 20230601
